FAERS Safety Report 5525453-7 (Version None)
Quarter: 2007Q4

REPORT INFORMATION
  Report Type: 
  Country: None (occurrence: None)
  Receive Date: 20071119
  Receipt Date: 20071105
  Transmission Date: 20080405
  Serious: Yes (Life-Threatening)
  Sender: FDA-Public Use
  Company Number: GXKR2007TR09507

PATIENT
  Age: 40 Year
  Sex: Male

DRUGS (5)
  1. RIFAMPICIN [Suspect]
     Indication: TUBERCULOSIS
  2. ISONIAZID [Concomitant]
  3. ETAMBUTOL (ETHAMBUTOL) [Concomitant]
  4. PYRAZINAMIDE [Concomitant]
  5. STREPTOMYCIN [Concomitant]

REACTIONS (10)
  - CHILLS [None]
  - CYANOSIS [None]
  - DIALYSIS [None]
  - DISORIENTATION [None]
  - HEPATIC FUNCTION ABNORMAL [None]
  - LIVER INJURY [None]
  - RENAL FAILURE ACUTE [None]
  - TREMOR [None]
  - TUBERCULOSIS [None]
  - VOMITING [None]
